FAERS Safety Report 5703744-4 (Version None)
Quarter: 2008Q2

REPORT INFORMATION
  Report Type: 
  Country: None (occurrence: None)
  Receive Date: 20080413
  Receipt Date: 20080402
  Transmission Date: 20081010
  Serious: Yes (Other)
  Sender: FDA-Public Use
  Company Number: PHHY2008JP04576

PATIENT

DRUGS (1)
  1. GLEEVEC [Suspect]
     Indication: CHRONIC MYELOID LEUKAEMIA
     Route: 048

REACTIONS (4)
  - ILEUS PARALYTIC [None]
  - IMPAIRED GASTRIC EMPTYING [None]
  - INTESTINAL OPERATION [None]
  - STOMACH DILATION PROCEDURE [None]
